FAERS Safety Report 9323661 (Version 1)
Quarter: 2013Q2

REPORT INFORMATION
  Report Type: Report from Study
  Country: CA (occurrence: CA)
  Receive Date: 20130603
  Receipt Date: 20130603
  Transmission Date: 20140414
  Serious: No
  Sender: FDA-Public Use
  Company Number: PHHY2012CA122168

PATIENT
  Age: 69 Year
  Sex: Female

DRUGS (2)
  1. EXELON PATCH [Suspect]
     Indication: DEMENTIA ALZHEIMER^S TYPE
     Dosage: 9.5 MG/ 24 HRS
     Route: 062
     Dates: start: 20121124, end: 20130507
  2. CITALOPRAM [Concomitant]
     Dosage: 20 MG, BID

REACTIONS (3)
  - Skin burning sensation [Unknown]
  - Weight decreased [Recovered/Resolved]
  - Erythema [Unknown]
